FAERS Safety Report 7070924-8 (Version None)
Quarter: 2010Q4

REPORT INFORMATION
  Report Type: 
  Country: None (occurrence: None)
  Receive Date: 20101029
  Receipt Date: 20101021
  Transmission Date: 20110411
  Serious: Yes (Death, Life-Threatening, Hospitalization, Other)
  Sender: FDA-Public Use
  Company Number: JP-BAYER-201011360BYL

PATIENT
  Age: 56 Year
  Sex: Female
  Weight: 46 kg

DRUGS (21)
  1. NEXAVAR [Suspect]
     Indication: HEPATIC NEOPLASM MALIGNANT
     Dosage: TOTAL DAILY DOSE: 400 MG  UNIT DOSE: 200 MG
     Route: 048
     Dates: start: 20091221, end: 20091228
  2. NEXAVAR [Suspect]
     Dosage: TOTAL DAILY DOSE: 400 MG  UNIT DOSE: 200 MG
     Route: 048
     Dates: start: 20100127, end: 20100308
  3. VOLTAREN [Suspect]
     Indication: PAIN MANAGEMENT
     Dosage: 25MG/2-3 TIMES/DAY
     Route: 054
  4. VOLTAREN [Suspect]
     Dosage: UNIT DOSE: 25 MG
     Route: 054
     Dates: start: 20100301, end: 20100308
  5. RANDA [Suspect]
     Indication: HEPATIC NEOPLASM MALIGNANT
     Route: 041
     Dates: start: 20091021, end: 20091126
  6. LASIX [Concomitant]
     Dosage: UNIT DOSE: 20 MG
     Route: 042
     Dates: start: 20100120, end: 20100123
  7. LASIX [Concomitant]
     Dosage: UNIT DOSE: 20 MG
     Route: 048
     Dates: end: 20100124
  8. ALDACTONE [Concomitant]
     Dosage: UNIT DOSE: 25 MG
     Route: 048
  9. PREDNISOLONE [Concomitant]
     Dosage: UNIT DOSE: 5 MG
     Route: 048
     Dates: end: 20100311
  10. MAGMITT [Concomitant]
     Indication: CONSTIPATION
     Dosage: UNIT DOSE: 330 MG
     Route: 048
  11. GASTER D [Concomitant]
     Indication: GASTRITIS PROPHYLAXIS
     Dosage: UNIT DOSE: 20 MG
     Route: 048
  12. MYSLEE [Concomitant]
     Indication: INSOMNIA
     Dosage: UNIT DOSE: 10 MG
     Route: 048
  13. URSO 250 [Concomitant]
     Dosage: UNIT DOSE: 100 MG
     Route: 048
  14. UREPEARL [Concomitant]
     Indication: PROPHYLAXIS
     Route: 061
     Dates: start: 20091221
  15. LOXONIN [Concomitant]
     Dosage: UNIT DOSE: 60 MG
     Route: 048
  16. DIART [Concomitant]
     Dosage: UNIT DOSE: 60 MG
     Route: 048
     Dates: start: 20100125, end: 20100211
  17. DIART [Concomitant]
     Dosage: UNIT DOSE: 30 MG
     Route: 048
     Dates: start: 20100217, end: 20100420
  18. ALBUMIN (HUMAN) [Concomitant]
     Dosage: UNIT DOSE: 12.5 G
     Route: 042
     Dates: start: 20100120, end: 20100123
  19. ALBUMIN (HUMAN) [Concomitant]
     Dosage: UNIT DOSE: 12.5 G
     Route: 042
     Dates: start: 20100324, end: 20100328
  20. ALBUMIN (HUMAN) [Concomitant]
     Dosage: UNIT DOSE: 12.5 G
     Route: 042
     Dates: start: 20100401, end: 20100405
  21. AMINOLEBAN [Concomitant]
     Route: 041
     Dates: start: 20100308, end: 20100425

REACTIONS (5)
  - GASTROINTESTINAL HAEMORRHAGE [None]
  - HEPATIC ENCEPHALOPATHY [None]
  - HEPATIC FUNCTION ABNORMAL [None]
  - HEPATIC NEOPLASM MALIGNANT [None]
  - PALMAR-PLANTAR ERYTHRODYSAESTHESIA SYNDROME [None]
